FAERS Safety Report 6200151-5 (Version None)
Quarter: 2009Q2

REPORT INFORMATION
  Report Type: 
  Country: None (occurrence: None)
  Receive Date: 20090522
  Receipt Date: 20090514
  Transmission Date: 20091009
  Serious: Yes (Hospitalization)
  Sender: FDA-Public Use
  Company Number: FR-JNJFOC-20090503599

PATIENT
  Sex: Female

DRUGS (18)
  1. DURAGESIC-100 [Suspect]
     Route: 062
  2. DURAGESIC-100 [Suspect]
     Route: 062
  3. DURAGESIC-100 [Suspect]
     Route: 062
  4. DURAGESIC-100 [Suspect]
     Indication: DRUG USE FOR UNKNOWN INDICATION
     Route: 062
  5. ACTIQ [Suspect]
     Dosage: DOSE TAKEN: 400 AND 800 DURING THE DAY, THEN 400, 600 AND 800 IN THE EVENING
     Route: 048
  6. ACTIQ [Suspect]
     Dosage: DELIVERED: 400, 600 AND 800
     Route: 048
  7. ACTIQ [Suspect]
     Route: 048
  8. ACTIQ [Suspect]
     Indication: DRUG USE FOR UNKNOWN INDICATION
     Route: 048
  9. VENLAFAXINE [Concomitant]
  10. RIVOTRIL [Concomitant]
     Route: 048
  11. MEPRONIZINE [Concomitant]
  12. BROMAZEPAM [Concomitant]
  13. KALEORID [Concomitant]
  14. BUMEX [Concomitant]
  15. FORLAX [Concomitant]
  16. TETRAZEPAM [Concomitant]
  17. ARTOTEC [Concomitant]
  18. OXYNORM [Concomitant]

REACTIONS (6)
  - CONFUSIONAL STATE [None]
  - DELIRIUM [None]
  - DYSPNOEA [None]
  - INCOHERENT [None]
  - RESPIRATORY DISTRESS [None]
  - VERTIGO [None]
